FAERS Safety Report 18216880 (Version 11)
Quarter: 2021Q4

REPORT INFORMATION
  Report Type: Spontaneous
  Country: GB (occurrence: GB)
  Receive Date: 20200901
  Receipt Date: 20211222
  Transmission Date: 20220303
  Serious: Yes (Other)
  Sender: FDA-Public Use
  Company Number: None

PATIENT
  Age: 88 Year
  Sex: Male

DRUGS (14)
  1. ALLOPURINOL [Suspect]
     Active Substance: ALLOPURINOL
     Indication: Prostate cancer
  2. AMLODIPINE [Suspect]
     Active Substance: AMLODIPINE BESYLATE
     Indication: Pulmonary embolism
     Route: 065
  3. ATORVASTATIN [Suspect]
     Active Substance: ATORVASTATIN
     Indication: Pulmonary embolism
     Route: 065
  4. LISINOPRIL [Suspect]
     Active Substance: LISINOPRIL
     Indication: Pulmonary embolism
     Route: 065
  5. SIMVASTATIN [Suspect]
     Active Substance: SIMVASTATIN
     Indication: Prostate cancer
  6. LEUPROLIDE ACETATE [Suspect]
     Active Substance: LEUPROLIDE ACETATE
     Indication: Pulmonary embolism
     Route: 065
  7. LUPRON DEPOT [Suspect]
     Active Substance: LEUPROLIDE ACETATE
     Indication: Pulmonary embolism
     Route: 065
  8. EDOXABAN [Suspect]
     Active Substance: EDOXABAN
     Indication: Pulmonary embolism
     Route: 065
  9. NYSTATIN [Suspect]
     Active Substance: NYSTATIN
     Indication: Prostate cancer
  10. ATORVASTATIN CALCIUM [Concomitant]
     Active Substance: ATORVASTATIN CALCIUM
     Indication: Prostate cancer
     Route: 065
  11. CARBOPLATIN/ETOPOSIDE [Concomitant]
     Indication: Prostate cancer
     Route: 065
     Dates: start: 201912
  12. CARBOPLATIN [Concomitant]
     Active Substance: CARBOPLATIN
     Indication: Chemotherapy
  13. ETOPOSIDE [Concomitant]
     Active Substance: ETOPOSIDE
     Indication: Chemotherapy
     Dates: start: 201912
  14. THIABENDAZOLE [Concomitant]
     Active Substance: THIABENDAZOLE
     Indication: Product used for unknown indication
     Route: 065

REACTIONS (10)
  - Prostate cancer recurrent [Unknown]
  - Disease progression [Unknown]
  - Blood electrolytes abnormal [Unknown]
  - Malignant transformation [Unknown]
  - Off label use [Unknown]
  - Blood urea abnormal [Unknown]
  - Lymphadenopathy [Unknown]
  - Hydronephrosis [Unknown]
  - Pelvic mass [Unknown]
  - Pulmonary embolism [Unknown]

NARRATIVE: CASE EVENT DATE: 20191201
